FAERS Safety Report 9514614 (Version 1)
Quarter: 2013Q1

REPORT INFORMATION
  Report Type: Spontaneous
  Country: US (occurrence: None)
  Receive Date: 20130305
  Receipt Date: 20130305
  Transmission Date: 20140127
  Serious: Yes (Hospitalization, Disabling)
  Sender: FDA-Public Use
  Company Number: 163-21880-12112456

PATIENT
  Age: 67 Year
  Sex: Female

DRUGS (2)
  1. REVLIMID [Suspect]
     Indication: PLASMA CELL MYELOMA
     Dosage: 25 MG, 2X/WEEK ON MONDAY, THURSDAY, PO
     Route: 048
     Dates: start: 20100604
  2. PROCRIT [Suspect]
     Indication: FULL BLOOD COUNT DECREASED
     Dosage: 2857.1429 IU, 1 IN 1 WK, SC 3 TIMES A WEEK, SC
     Route: 058
     Dates: start: 20100923

REACTIONS (7)
  - Dehydration [None]
  - Pneumonia [None]
  - Full blood count decreased [None]
  - Renal impairment [None]
  - Swelling [None]
  - Local swelling [None]
  - Asthenia [None]
